FAERS Safety Report 5175907-0 (Version None)
Quarter: 2006Q4

REPORT INFORMATION
  Report Type: 
  Country: None (occurrence: None)
  Receive Date: 20061215
  Receipt Date: 20061213
  Transmission Date: 20070319
  Serious: Yes (Hospitalization)
  Sender: FDA-Public Use
  Company Number: J200605353

PATIENT
  Age: 24 Year
  Sex: Female

DRUGS (4)
  1. AMOXICILLIN [Suspect]
     Indication: DENTAL TREATMENT
     Dosage: 750MG PER DAY
     Route: 048
     Dates: start: 20061124, end: 20061125
  2. LOXONIN [Suspect]
     Indication: DENTAL TREATMENT
     Route: 048
     Dates: start: 20061124, end: 20061125
  3. MARZULENE S [Suspect]
     Indication: DENTAL TREATMENT
     Route: 048
     Dates: start: 20061124, end: 20061125
  4. PREDONINE [Suspect]
     Indication: DENTAL TREATMENT
     Route: 048
     Dates: start: 20061124, end: 20061125

REACTIONS (4)
  - DIARRHOEA [None]
  - HEPATIC FUNCTION ABNORMAL [None]
  - NAUSEA [None]
  - PYREXIA [None]
